FAERS Safety Report 4919342-6 (Version None)
Quarter: 2006Q1

REPORT INFORMATION
  Report Type: 
  Country: None (occurrence: None)
  Receive Date: 20060216
  Receipt Date: 20060206
  Transmission Date: 20060701
  Serious: Yes (Other)
  Sender: FDA-Public Use
  Company Number: 2006018829

PATIENT
  Age: 57 Year
  Sex: Female
  Weight: 99.7913 kg

DRUGS (3)
  1. XALATAN [Suspect]
     Indication: GLAUCOMA
     Dosage: 3 MCG (1.5 MCG, 2 IN 1 D), OPHTHALMIC
     Route: 047
     Dates: start: 20030101
  2. VERAPAMIL [Concomitant]
  3. AMBIEN [Concomitant]

REACTIONS (12)
  - ANAESTHETIC COMPLICATION [None]
  - BARRETT'S OESOPHAGUS [None]
  - EAR INFECTION [None]
  - EFFUSION [None]
  - INFLUENZA [None]
  - LOWER RESPIRATORY TRACT INFECTION [None]
  - NASOPHARYNGITIS [None]
  - OEDEMA [None]
  - PHARYNGITIS [None]
  - SECRETION DISCHARGE [None]
  - SINUSITIS [None]
  - SLEEP APNOEA SYNDROME [None]
